FAERS Safety Report 24401044 (Version 1)
Quarter: 2024Q4

REPORT INFORMATION
  Report Type: Report from Study
  Country: US (occurrence: US)
  Receive Date: 20241006
  Receipt Date: 20241006
  Transmission Date: 20250115
  Serious: Yes (Hospitalization)
  Sender: ABBVIE
  Company Number: US-ABBVIE-5949399

PATIENT
  Age: 72 Year
  Sex: Female

DRUGS (1)
  1. RINVOQ [Suspect]
     Active Substance: UPADACITINIB
     Indication: Dermatitis atopic
     Route: 048
     Dates: start: 20220821

REACTIONS (2)
  - Sepsis [Recovering/Resolving]
  - Gastric ulcer perforation [Recovering/Resolving]

NARRATIVE: CASE EVENT DATE: 20240925
